FAERS Safety Report 9860441 (Version 1)
Quarter: 2014Q1

REPORT INFORMATION
  Report Type: Spontaneous
  Country: US (occurrence: US)
  Receive Date: 20140202
  Receipt Date: 20140202
  Transmission Date: 20141002
  Serious: Yes (Death)
  Sender: FDA-Public Use
  Company Number: CHPA2014US001583

PATIENT
  Age: 48 Year
  Sex: Male

DRUGS (6)
  1. DIPHENHYDRAMINE [Suspect]
     Route: 048
  2. ACETAMINOPHEN (PARACETAMOL) [Suspect]
     Route: 048
  3. METHADONE [Suspect]
     Route: 048
  4. CLONAZEPAM [Suspect]
     Route: 048
  5. COCAINE [Suspect]
     Route: 048
  6. CITALOPRAM [Suspect]
     Route: 048

REACTIONS (1)
  - Intentional drug misuse [Fatal]
